FAERS Safety Report 5838467-4 (Version None)
Quarter: 2008Q3

REPORT INFORMATION
  Report Type: 
  Country: None (occurrence: None)
  Receive Date: 20080808
  Receipt Date: 20080731
  Transmission Date: 20090109
  Serious: Yes (Other)
  Sender: FDA-Public Use
  Company Number: US-ASTRAZENECA-2008UW10023

PATIENT
  Age: 721 Month
  Sex: Male
  Weight: 131.5 kg

DRUGS (3)
  1. SEROQUEL [Suspect]
     Indication: DEPRESSION
     Route: 048
     Dates: start: 20020901, end: 20071001
  2. EFFEXOR [Concomitant]
     Dosage: 25MG - 150MG
     Dates: start: 20001001, end: 20020901
  3. ZYPREXA [Concomitant]
     Dates: start: 20020901

REACTIONS (4)
  - BLOOD CHOLESTEROL INCREASED [None]
  - CEREBROVASCULAR ACCIDENT [None]
  - PULMONARY EMBOLISM [None]
  - TYPE 2 DIABETES MELLITUS [None]
